FAERS Safety Report 5455559-2 (Version None)
Quarter: 2007Q3

REPORT INFORMATION
  Report Type: 
  Country: None (occurrence: None)
  Receive Date: 20070913
  Receipt Date: 20070913
  Transmission Date: 20080115
  Serious: Yes (Other)
  Sender: FDA-Public Use
  Company Number: None

PATIENT
  Age: 40 Year
  Sex: Female
  Weight: 119 kg

DRUGS (1)
  1. VANCOMYCIN [Suspect]
     Indication: ENDOCARDITIS STAPHYLOCOCCAL
     Dosage: 1GRAM  Q12H  IV
     Route: 042
     Dates: start: 20070829, end: 20070910

REACTIONS (2)
  - INFUSION RELATED REACTION [None]
  - RASH GENERALISED [None]
